FAERS Safety Report 5759360-1 (Version None)
Quarter: 2008Q2

REPORT INFORMATION
  Report Type: 
  Country: None (occurrence: None)
  Receive Date: 20080605
  Receipt Date: 20080527
  Transmission Date: 20081010
  Serious: Yes (Other)
  Sender: FDA-Public Use
  Company Number: CA-JNJFOC-20080206560

PATIENT
  Sex: Female
  Weight: 55 kg

DRUGS (8)
  1. REMICADE [Suspect]
     Indication: COLITIS ULCERATIVE
     Route: 042
  2. PREDNISONE TAB [Concomitant]
  3. FOLIC ACID [Concomitant]
  4. CALCIUM + VITAMIN D [Concomitant]
  5. METHOTREXATE [Concomitant]
  6. LOREZEPAM [Concomitant]
  7. DOCUSATE SODIUM [Concomitant]
  8. HYDROXYQUIN [Concomitant]

REACTIONS (1)
  - ARTHRITIS [None]
